FAERS Safety Report 13400188 (Version 4)
Quarter: 2018Q1

REPORT INFORMATION
  Report Type: Spontaneous
  Country: US (occurrence: US)
  Receive Date: 20170404
  Receipt Date: 20180205
  Transmission Date: 20180508
  Serious: No
  Sender: FDA-Public Use
  Company Number: US-PFIZER INC-2017143008

PATIENT
  Age: 57 Year
  Sex: Female
  Weight: 69.57 kg

DRUGS (14)
  1. IBRANCE [Suspect]
     Active Substance: PALBOCICLIB
     Dosage: 125 MG, CYCLIC [125 MG DAILY, 21 DAYS ON AND 7 DAYS OFF]
     Route: 048
     Dates: start: 20151024
  2. IBRANCE [Suspect]
     Active Substance: PALBOCICLIB
     Dosage: 100 MG, CYCLIC (100 MG P.O. DAILY DAYS 1 THROUGH 21 EVERY 28 DAYS)
     Route: 048
     Dates: start: 20180121
  3. DOXYCYCLINE HYCLATE. [Concomitant]
     Active Substance: DOXYCYCLINE HYCLATE
     Dosage: 50 MG, 2X/DAY
     Route: 048
  4. NYSTATIN. [Concomitant]
     Active Substance: NYSTATIN
     Dosage: 5 IU, 4X/DAY
     Route: 061
  5. IBRANCE [Suspect]
     Active Substance: PALBOCICLIB
     Dosage: 100 MG, CYCLIC (TAKE 1 CAPSULE BY MOUTH DAILY FOR 21 DAYS AND 7 DAYS OFF)
     Route: 048
  6. IBRANCE [Suspect]
     Active Substance: PALBOCICLIB
     Indication: BREAST CANCER FEMALE
     Dosage: 100 MG, DAILY
     Route: 048
     Dates: start: 20151016
  7. XGEVA [Concomitant]
     Active Substance: DENOSUMAB
     Dosage: UNK (EVERY 8 WEEKS)
     Dates: start: 20180126
  8. IBRANCE [Suspect]
     Active Substance: PALBOCICLIB
     Dosage: 125 MG, CYCLIC [TAKE 1 CAPSULE BY MOUTH DAILY FOR 21 DAYS AND 7 DAYS OFF]
     Route: 048
     Dates: start: 201702
  9. HYDROCODONE BITARTRATE AND ACETAMINOPHEN [Concomitant]
     Active Substance: ACETAMINOPHEN\HYDROCODONE BITARTRATE
     Indication: PAIN
     Dosage: 1 DF, AS NEEDED (TAKE 1 PO Q4H PRN) [HYDROCODONE BITARTRATE: 5 MG/ACETAMINOPHEN: 325 MG]
     Route: 048
  10. LETROZOLE. [Concomitant]
     Active Substance: LETROZOLE
     Dosage: 2.5 MG, DAILY
     Route: 048
     Dates: start: 20151002
  11. VITAMIN D3 [Concomitant]
     Active Substance: CHOLECALCIFEROL
     Dosage: 5000 IU, DAILY
     Route: 048
  12. XGEVA [Concomitant]
     Active Substance: DENOSUMAB
     Indication: METASTASES TO BONE
     Dosage: UNK (EVERY FOUR WEEKS)
     Dates: start: 20151019
  13. FLONASE /00908302/ [Concomitant]
     Active Substance: MOMETASONE FUROATE
     Indication: RHINITIS ALLERGIC
     Dosage: UNK
  14. ALLEGRA [Concomitant]
     Active Substance: FEXOFENADINE HYDROCHLORIDE
     Indication: RHINITIS ALLERGIC
     Dosage: UNK

REACTIONS (10)
  - Musculoskeletal stiffness [Unknown]
  - Musculoskeletal pain [Unknown]
  - Feeling abnormal [Unknown]
  - Disorientation [Recovering/Resolving]
  - Dry mouth [Recovering/Resolving]
  - Nasopharyngitis [Recovering/Resolving]
  - Insomnia [Unknown]
  - Fatigue [Recovering/Resolving]
  - Arthralgia [Unknown]
  - Joint stiffness [Unknown]

NARRATIVE: CASE EVENT DATE: 2017
